FAERS Safety Report 10214430 (Version 1)
Quarter: 2014Q2

REPORT INFORMATION
  Report Type: Spontaneous
  Country: IT (occurrence: IT)
  Receive Date: 20140603
  Receipt Date: 20140603
  Transmission Date: 20141212
  Serious: Yes (Hospitalization)
  Sender: FDA-Public Use
  Company Number: IT-TEVA-483787ISR

PATIENT
  Age: 80 Year
  Sex: Female

DRUGS (12)
  1. PAROXETINE HYDROCHLORIDE [Suspect]
     Indication: DEPRESSION
     Dosage: 20 MG DAILY
     Route: 048
     Dates: start: 20140101, end: 20140309
  2. AMIODARONE HYDROCHLORIDE [Interacting]
     Indication: ARRHYTHMIA
     Dosage: 200 MG DAILY
     Route: 048
     Dates: start: 20131218, end: 20140309
  3. COUMADIN 5 MG COMPRESSE - BRISTOL MYERS SQUIBB S.R.L. [Interacting]
     Indication: ATRIAL FIBRILLATION
     Dosage: .75 DF AS NECESSARY
     Route: 048
     Dates: start: 20140201, end: 20140309
  4. DELTACORTENE 5 MG COMPRESSE - BRUNO FARMACEUTICI S.P.A. [Interacting]
     Indication: PRODUCT USED FOR UNKNOWN INDICATION
     Dosage: 1 DF DAILY
     Route: 048
     Dates: start: 20131101, end: 20140309
  5. TRITTICO 25 MG/ML GOCCE ORALI SOLUZIONE [Concomitant]
     Indication: DEPRESSION
     Dosage: 25 GTT
     Route: 048
  6. FUROSEMIDE DOC GENERICI 25 MG COMPRESSE [Concomitant]
     Indication: HYPERTENSION
     Dosage: 1 DF
     Route: 048
  7. LEXOTAN 2,5MG/ML GOCCE ORALI SOLUZIONE [Concomitant]
     Indication: PRODUCT USED FOR UNKNOWN INDICATION
  8. PANTOPRAZOLO BLUEFISH 20 MG COMPRESSE GASTRORESISTENTI [Concomitant]
     Indication: PRODUCT USED FOR UNKNOWN INDICATION
     Dosage: 1 DF
  9. KANRENOL 25 MG COMPRESSE [Concomitant]
     Indication: PRODUCT USED FOR UNKNOWN INDICATION
     Dosage: 1 DF
     Dates: start: 20131215, end: 20140309
  10. VALSARTAN ACTAVIS 160 MG COMPRESSE RIVESTITE CON FILM [Concomitant]
     Indication: CARDIAC FAILURE
     Dosage: 1 DF
     Dates: start: 20130606, end: 20140309
  11. AMLODIPINE BESYLATE [Concomitant]
     Indication: PRODUCT USED FOR UNKNOWN INDICATION
     Dosage: 10 MG
  12. BISOPROLOL HEMIFUMARATE [Concomitant]
     Indication: PRODUCT USED FOR UNKNOWN INDICATION
     Dosage: 1.25 MG

REACTIONS (3)
  - Anaemia [Recovered/Resolved]
  - Drug interaction [Recovered/Resolved]
  - Spontaneous haematoma [Recovered/Resolved]
